FAERS Safety Report 6613309-8 (Version None)
Quarter: 2010Q1

REPORT INFORMATION
  Report Type: 
  Country: None (occurrence: None)
  Receive Date: 20100304
  Receipt Date: 20100222
  Transmission Date: 20100710
  Serious: Yes (Hospitalization, Other)
  Sender: FDA-Public Use
  Company Number: PHEH2010US02723

PATIENT
  Sex: Male
  Weight: 57.2 kg

DRUGS (3)
  1. EXJADE [Suspect]
     Indication: SICKLE CELL ANAEMIA
     Dosage: 1500 MG, QD
     Route: 048
  2. EXJADE [Suspect]
     Dosage: NO TREATMENT
  3. EXJADE [Suspect]
     Dosage: UNK

REACTIONS (2)
  - CHOLECYSTECTOMY [None]
  - HERNIA [None]
